FAERS Safety Report 10444742 (Version 2)
Quarter: 2015Q1

REPORT INFORMATION
  Report Type: Spontaneous
  Country: US (occurrence: US)
  Receive Date: 20140910
  Receipt Date: 20150116
  Transmission Date: 20150720
  Serious: Yes (Life-Threatening, Hospitalization)
  Sender: FDA-Public Use
  Company Number: US-BAYER-2014-131955

PATIENT
  Age: 31 Year
  Sex: Female

DRUGS (15)
  1. PRENATAL [Concomitant]
     Active Substance: VITAMINS
     Dosage: DAILY
     Dates: start: 20110713
  2. ZOLOFT [Concomitant]
     Active Substance: SERTRALINE HYDROCHLORIDE
     Dosage: 50 MG, UNK
     Dates: start: 20110802
  3. FLEXERIL [Concomitant]
     Active Substance: CYCLOBENZAPRINE HYDROCHLORIDE
     Indication: MUSCLE SPASMS
     Dosage: 10 MG, Q 8 PRN
     Route: 048
     Dates: start: 20110825
  4. GUAIFENESIN/CODEINE [Concomitant]
     Indication: COUGH
     Dosage: 100-10 MG/5ML TAKE1-2 TSP 4 [TIMES] DAILY AS NEEDED
     Dates: start: 20110905
  5. MIRENA [Suspect]
     Active Substance: LEVONORGESTREL
     Indication: CONTRACEPTION
     Dosage: 20 MCG/24HR, CONT
     Route: 015
     Dates: start: 20111109, end: 20140321
  6. CELEXA [Concomitant]
     Active Substance: CITALOPRAM HYDROBROMIDE
     Dosage: 80 MG, UNK
     Dates: start: 20110713
  7. XANAX [Concomitant]
     Active Substance: ALPRAZOLAM
     Indication: ANXIETY
     Dosage: 0.5 MG, BID AS NEEDED
  8. PERCOCET [Concomitant]
     Active Substance: ACETAMINOPHEN\OXYCODONE HYDROCHLORIDE
  9. ZOFRAN [Concomitant]
     Active Substance: ONDANSETRON HYDROCHLORIDE
  10. MIRENA [Suspect]
     Active Substance: LEVONORGESTREL
     Indication: CONTRACEPTION
     Dosage: 20 MCG/24HR, CONT
     Route: 015
     Dates: start: 20110315, end: 20110914
  11. ATIVAN [Concomitant]
     Active Substance: LORAZEPAM
     Indication: ANXIETY
     Dosage: 0.5 MG, BID AS NEEDED
     Route: 048
  12. ALEVE [Concomitant]
     Active Substance: NAPROXEN SODIUM
     Dosage: 220 MG, BID
     Route: 048
     Dates: start: 20110825
  13. MOTRIN [Concomitant]
     Active Substance: IBUPROFEN
  14. PROAIR HFA [Concomitant]
     Active Substance: ALBUTEROL SULFATE
     Dosage: ONE TO TWO PUFFS Q 6 AS NEEDED
     Dates: start: 20110825
  15. AZITHROMYCIN [Concomitant]
     Active Substance: AZITHROMYCIN ANHYDROUS
     Dosage: 250 MG, 2 TABS THEN 1 TAB DAILY FOR 4 DAYS
     Dates: start: 20110905

REACTIONS (12)
  - Anxiety [None]
  - Adnexa uteri pain [None]
  - Uterine perforation [None]
  - Uterine perforation [None]
  - Abdominal pain lower [None]
  - General physical health deterioration [None]
  - Injury [None]
  - Genital haemorrhage [None]
  - Abdominal pain [None]
  - Emotional distress [None]
  - Nausea [None]
  - Anhedonia [None]

NARRATIVE: CASE EVENT DATE: 201109
